FAERS Safety Report 9241593 (Version 1)
Quarter: 2013Q2

REPORT INFORMATION
  Report Type: Spontaneous
  Country: DE (occurrence: DE)
  Receive Date: 20130419
  Receipt Date: 20130419
  Transmission Date: 20140414
  Serious: Yes (Other)
  Sender: FDA-Public Use
  Company Number: DE-RANBAXY-2013RR-67612

PATIENT
  Age: 62 Year
  Sex: Female

DRUGS (1)
  1. CEFUROX BASICS 500 MG TABLETTEN [Suspect]
     Indication: NODULE
     Dosage: UNK
     Route: 065
     Dates: start: 20130402, end: 20130405

REACTIONS (2)
  - Local swelling [Unknown]
  - Rash [Unknown]
